FAERS Safety Report 5945497-0 (Version None)
Quarter: 2008Q4

REPORT INFORMATION
  Report Type: 
  Country: None (occurrence: None)
  Receive Date: 20081107
  Receipt Date: 20081027
  Transmission Date: 20090506
  Serious: Yes (Other)
  Sender: FDA-Public Use
  Company Number: CA-PFIZER INC-2008090098

PATIENT
  Age: 39 Year
  Sex: Female

DRUGS (2)
  1. METRONIDAZOLE TABLET [Suspect]
     Indication: DIVERTICULITIS
  2. CIPROFLOXACIN [Suspect]
     Indication: DIVERTICULITIS

REACTIONS (1)
  - HEPATOTOXICITY [None]
